FAERS Safety Report 8122640-9 (Version None)
Quarter: 2012Q1

REPORT INFORMATION
  Report Type: 
  Country: None (occurrence: None)
  Receive Date: 20120208
  Receipt Date: 20120206
  Transmission Date: 20120608
  Serious: Yes (Death, Hospitalization)
  Sender: FDA-Public Use
  Company Number: JP-BAYER-200914695BYL

PATIENT
  Age: 67 Year
  Sex: Male
  Weight: 46 kg

DRUGS (10)
  1. AMLODIPINE [Concomitant]
     Indication: HYPERTENSION
     Dosage: 5 MG (DAILY DOSE), , ORAL
     Route: 048
     Dates: end: 20091204
  2. NEXAVAR [Suspect]
     Dosage: 600 MG (DAILY DOSE), , ORAL
     Route: 048
     Dates: start: 20091228, end: 20100102
  3. DILTIAZEM HCL [Concomitant]
     Indication: ANGINA PECTORIS
     Dosage: 100 MG (DAILY DOSE), , ORAL
     Route: 048
     Dates: end: 20091204
  4. LENDORMIN [Concomitant]
     Indication: INSOMNIA
     Dosage: 0.25 MG (DAILY DOSE), , ORAL
     Route: 048
     Dates: end: 20091204
  5. ISOSORBIDE DINITRATE [Concomitant]
     Indication: ANGINA PECTORIS
     Dosage: 40 MG (DAILY DOSE), , TRANSDERMAL
     Route: 062
  6. ASPIRIN [Concomitant]
     Indication: ANGINA PECTORIS
     Dosage: 100 MG (DAILY DOSE), , ORAL
     Route: 048
     Dates: end: 20091204
  7. NEXAVAR [Suspect]
     Indication: HEPATIC NEOPLASM MALIGNANT
     Route: 048
     Dates: start: 20091109, end: 20091204
  8. NEXAVAR [Suspect]
     Dosage: 400 MG (DAILY DOSE), , ORAL
     Route: 048
     Dates: start: 20100103
  9. LANTUS [Concomitant]
     Indication: DIABETES MELLITUS
     Dosage: 21 U (DAILY DOSE), , SUBCUTANEOUS
     Route: 058
  10. LASIX [Concomitant]
     Indication: ASCITES
     Dosage: 40 MG (DAILY DOSE), , ORAL
     Route: 048
     Dates: end: 20091204

REACTIONS (7)
  - OESOPHAGEAL VARICES HAEMORRHAGE [None]
  - EPISTAXIS [None]
  - HEPATIC NEOPLASM MALIGNANT [None]
  - HAEMATEMESIS [None]
  - RASH [None]
  - PYREXIA [None]
  - HYPERAMMONAEMIA [None]
